FAERS Safety Report 4417159-2 (Version None)
Quarter: 2004Q3

REPORT INFORMATION
  Report Type: 
  Country: None (occurrence: None)
  Receive Date: 20040806
  Receipt Date: 20030929
  Transmission Date: 20050211
  Serious: Yes (Hospitalization, Other)
  Sender: FDA-Public Use
  Company Number: US-MERCK-0310USA00097

PATIENT
  Age: 46 Year
  Sex: Male
  Weight: 105 kg

DRUGS (3)
  1. PREVACID [Concomitant]
     Route: 065
  2. VIOXX [Suspect]
     Indication: RHEUMATOID ARTHRITIS
     Route: 048
     Dates: start: 20010101
  3. ZOCOR [Concomitant]
     Route: 048

REACTIONS (27)
  - ABDOMINAL PAIN LOWER [None]
  - ANXIETY [None]
  - ARTHRALGIA [None]
  - BACK PAIN [None]
  - BLOOD CHOLESTEROL INCREASED [None]
  - CHEST PAIN [None]
  - CLOSED HEAD INJURY [None]
  - CONSTIPATION [None]
  - CONVULSION [None]
  - COSTOCHONDRITIS [None]
  - DEPRESSION [None]
  - DYSPEPSIA [None]
  - DYSURIA [None]
  - ERECTILE DYSFUNCTION [None]
  - EYE DISORDER [None]
  - FALL [None]
  - GASTROOESOPHAGEAL REFLUX DISEASE [None]
  - HAEMORRHAGE [None]
  - HEAD INJURY [None]
  - HYPERTENSION [None]
  - KIDNEY INFECTION [None]
  - MIGRAINE [None]
  - OEDEMA PERIPHERAL [None]
  - OESOPHAGEAL DISORDER [None]
  - PALPITATIONS [None]
  - RENAL DISORDER [None]
  - ULCER [None]
